FAERS Safety Report 22349165 (Version 4)
Quarter: 2023Q4

REPORT INFORMATION
  Report Type: Report from Study
  Country: US (occurrence: US)
  Receive Date: 20230522
  Receipt Date: 20231219
  Transmission Date: 20240110
  Serious: Yes (Other)
  Sender: FDA-Public Use
  Company Number: US-ABBVIE-5173883

PATIENT
  Age: 61 Year
  Sex: Female
  Weight: 250 kg

DRUGS (2)
  1. HUMIRA [Suspect]
     Active Substance: ADALIMUMAB
     Indication: Rheumatoid arthritis
     Dosage: FORM STRENGTH: 40 MG
     Route: 058
     Dates: start: 20220129
  2. HUMIRA [Suspect]
     Active Substance: ADALIMUMAB
     Dosage: FORM STRENGTH: 40 MG
     Route: 058

REACTIONS (10)
  - Gallbladder disorder [Unknown]
  - Dural arteriovenous fistula [Recovered/Resolved]
  - Pulmonary mass [Unknown]
  - Illness [Unknown]
  - Dizziness [Recovered/Resolved]
  - Unevaluable event [Not Recovered/Not Resolved]
  - Pneumonia [Recovering/Resolving]
  - Bronchitis chronic [Unknown]
  - Feeling abnormal [Unknown]
  - Dyspnoea [Not Recovered/Not Resolved]

NARRATIVE: CASE EVENT DATE: 20220416
